FAERS Safety Report 5294917-6 (Version None)
Quarter: 2007Q2

REPORT INFORMATION
  Report Type: 
  Country: None (occurrence: None)
  Receive Date: 20070412
  Receipt Date: 20070330
  Transmission Date: 20071010
  Serious: Yes (Other)
  Sender: FDA-Public Use
  Company Number: PHBS2007CH03057

PATIENT
  Sex: Female

DRUGS (5)
  1. GLEEVEC [Suspect]
     Indication: CHRONIC MYELOID LEUKAEMIA
     Dosage: 400 MG/D
     Route: 065
     Dates: start: 20020528, end: 20040101
  2. GLEEVEC [Suspect]
     Dosage: 800 MG/DAY
     Dates: start: 20040101
  3. FOLVITE [Concomitant]
     Indication: ANAEMIA
     Dosage: 2 MG/D
  4. VITAMIN B-12 [Concomitant]
  5. RECORMON [Concomitant]
     Indication: ANAEMIA
     Dosage: 1 DOSE/WEEK
     Route: 058
     Dates: start: 20061108

REACTIONS (1)
  - HEARING IMPAIRED [None]
